FAERS Safety Report 8418076-3 (Version None)
Quarter: 2012Q2

REPORT INFORMATION
  Report Type: 
  Country: None (occurrence: None)
  Receive Date: 20120607
  Receipt Date: 20120530
  Transmission Date: 20120825
  Serious: Yes (Other)
  Sender: FDA-Public Use
  Company Number: US-ASTRAZENECA-2011SE32259

PATIENT
  Age: 54 Year
  Sex: Female

DRUGS (21)
  1. NEXIUM [Suspect]
     Route: 048
     Dates: start: 20090311
  2. CYCLOBENZAPRINE [Concomitant]
     Dates: start: 20060719
  3. ACETAMINOPHEN/COD [Concomitant]
     Dates: start: 20061002
  4. NEXIUM [Suspect]
     Route: 048
     Dates: start: 20060730
  5. NEXIUM [Suspect]
     Route: 048
     Dates: start: 20090211
  6. ZEGERID [Concomitant]
     Dates: start: 20070510
  7. FLUCONAZOLE [Concomitant]
     Dates: start: 20100904
  8. HYDROCODONE BITARTRATE AND IBUPROFEN [Concomitant]
     Dates: start: 20060418
  9. NEXIUM [Suspect]
     Indication: GASTROOESOPHAGEAL REFLUX DISEASE
     Route: 048
     Dates: start: 20010101
  10. NEXIUM [Suspect]
     Route: 048
     Dates: start: 20030630
  11. HYDROCODONE BITARTRATE AND ACETAMINOPHEN [Concomitant]
     Dosage: 7.5/750
     Dates: start: 20061026
  12. NEXIUM [Suspect]
     Route: 048
     Dates: start: 20060730
  13. NEXIUM [Suspect]
     Route: 048
     Dates: start: 20090211
  14. PREDNISONE TAB [Concomitant]
     Dates: start: 20090102
  15. NEXIUM [Suspect]
     Route: 048
     Dates: start: 20030630
  16. OXYPROZINE [Concomitant]
  17. SULFAMETHOXAZOLE AND TRIMETHOPRIM [Concomitant]
     Dates: start: 20061204
  18. NEXIUM [Suspect]
     Indication: DYSPEPSIA
     Route: 048
     Dates: start: 20010101
  19. NEXIUM [Suspect]
     Route: 048
     Dates: start: 20090311
  20. ESTRATEST [Concomitant]
     Dates: start: 20060901
  21. CEPHALEXIN [Concomitant]
     Dates: start: 20060925

REACTIONS (9)
  - FOOT FRACTURE [None]
  - INTERVERTEBRAL DISC DEGENERATION [None]
  - OSTEOPOROSIS [None]
  - BONE DISORDER [None]
  - HERNIA [None]
  - CATARACT [None]
  - BLINDNESS [None]
  - ASTIGMATISM [None]
  - VISION BLURRED [None]
